FAERS Safety Report 4658487-5 (Version None)
Quarter: 2005Q2

REPORT INFORMATION
  Report Type: 
  Country: None (occurrence: None)
  Receive Date: 20050509
  Receipt Date: 20050427
  Transmission Date: 20051028
  Serious: Yes (Death)
  Sender: FDA-Public Use
  Company Number: 05H-163-0298814-00

PATIENT
  Age: 17 Year
  Sex: Female

DRUGS (1)
  1. AMIDATE [Suspect]

REACTIONS (3)
  - CARBOXYHAEMOGLOBIN INCREASED [None]
  - INTENTIONAL MISUSE [None]
  - VICTIM OF HOMICIDE [None]
